FAERS Safety Report 5188251-2 (Version None)
Quarter: 2006Q4

REPORT INFORMATION
  Report Type: 
  Country: None (occurrence: None)
  Receive Date: 20061221
  Receipt Date: 20061220
  Transmission Date: 20070319
  Serious: Yes (Other)
  Sender: FDA-Public Use
  Company Number: CA-GLAXOSMITHKLINE-A0632361A

PATIENT
  Age: 37 Year
  Sex: Female

DRUGS (5)
  1. SEREVENT [Suspect]
     Indication: ASTHMA
     Route: 055
  2. FLOVENT [Suspect]
     Indication: ASTHMA
     Route: 055
  3. ADVAIR DISKUS 100/50 [Suspect]
     Indication: ASTHMA
     Route: 055
  4. VENTOLIN [Suspect]
     Indication: ASTHMA
     Route: 055
  5. QVAR 40 [Concomitant]
     Indication: ASTHMA

REACTIONS (5)
  - ASTHMA [None]
  - DRUG INEFFECTIVE [None]
  - GENERALISED ERYTHEMA [None]
  - HYPERSENSITIVITY [None]
  - INFECTION [None]
